FAERS Safety Report 18006897 (Version 1)
Quarter: 2020Q3

REPORT INFORMATION
  Report Type: Spontaneous
  Country: US (occurrence: US)
  Receive Date: 20200709
  Receipt Date: 20200709
  Transmission Date: 20201103
  Serious: No
  Sender: FDA-Public Use
  Company Number: None

PATIENT

DRUGS (2)
  1. HEPARIN LOCK FLUSH [Suspect]
     Active Substance: HEPARIN SODIUM
     Dosage: ?          OTHER STRENGTH:500UNITS/5ML;OTHER DOSE:500UNITS/5ML;?
  2. CALCIUM CHLORIDE 10% [Suspect]
     Active Substance: CALCIUM CHLORIDE

REACTIONS (1)
  - Product name confusion [None]
